FAERS Safety Report 4638938-2 (Version None)
Quarter: 2005Q2

REPORT INFORMATION
  Report Type: 
  Country: None (occurrence: None)
  Receive Date: 20050419
  Receipt Date: 20050310
  Transmission Date: 20051028
  Serious: Yes (Other)
  Sender: FDA-Public Use
  Company Number: NL-GLAXOSMITHKLINE-B0375213A

PATIENT
  Age: 37 Year
  Sex: Female

DRUGS (1)
  1. ABACAVIR SULPHATE [Suspect]
     Indication: HIV INFECTION
     Dosage: 2TAB PER DAY
     Route: 065
     Dates: start: 20000101

REACTIONS (2)
  - CACHEXIA [None]
  - WEIGHT DECREASED [None]
